FAERS Safety Report 12076397 (Version 2)
Quarter: 2016Q1

REPORT INFORMATION
  Report Type: Spontaneous
  Country: US (occurrence: US)
  Receive Date: 20160215
  Receipt Date: 20160223
  Transmission Date: 20160526
  Serious: No
  Sender: FDA-Public Use
  Company Number: US-009507513-1602USA006757

PATIENT
  Age: 51 Year
  Sex: Male
  Weight: 103.4 kg

DRUGS (5)
  1. ZONTIVITY [Suspect]
     Active Substance: VORAPAXAR SULFATE
     Indication: CORONARY ARTERY DISEASE
  2. ASPIRIN. [Concomitant]
     Active Substance: ASPIRIN
     Indication: CORONARY ARTERY DISEASE
     Dosage: TOTAL DAILY DOSE 325 (UNIT NOT PROVIDED)
     Route: 048
  3. ZONTIVITY [Suspect]
     Active Substance: VORAPAXAR SULFATE
     Indication: MYOCARDIAL INFARCTION
  4. EFFIENT [Concomitant]
     Active Substance: PRASUGREL HYDROCHLORIDE
     Indication: CORONARY ARTERY DISEASE
     Dosage: TOTAL DAILY DOSE 10 (UNIT NOT PROVIDE)
     Route: 048
  5. ZONTIVITY [Suspect]
     Active Substance: VORAPAXAR SULFATE
     Indication: CARDIOVASCULAR EVENT PROPHYLAXIS
     Dosage: 2.08 MG, QD
     Route: 048
     Dates: start: 20160106, end: 20160205

REACTIONS (1)
  - Epistaxis [Recovered/Resolved]

NARRATIVE: CASE EVENT DATE: 20160108
